FAERS Safety Report 19470901 (Version 3)
Quarter: 2022Q3

REPORT INFORMATION
  Report Type: Spontaneous
  Country: AR (occurrence: AR)
  Receive Date: 20210628
  Receipt Date: 20220624
  Transmission Date: 20221026
  Serious: Yes (Hospitalization, Other)
  Sender: FDA-Public Use
  Company Number: NVSC2021AR139778

PATIENT
  Sex: Female

DRUGS (6)
  1. GLYCOPYRROLATE [Suspect]
     Active Substance: GLYCOPYRROLATE
     Indication: Chronic obstructive pulmonary disease
     Dosage: 0.5 MG, QD (ATARTED 6-7 YEARS AGO, STOPED 2 DAYS AGO)
     Route: 065
  2. GLYCOPYRROLATE [Suspect]
     Active Substance: GLYCOPYRROLATE
     Dosage: UNK
     Route: 065
     Dates: end: 202105
  3. THYROXINE [Concomitant]
     Active Substance: LEVOTHYROXINE
     Indication: Product used for unknown indication
     Dosage: 50 MG, 5 DAYS A WEEK
     Route: 065
  4. OMEPRAZOLE [Concomitant]
     Active Substance: OMEPRAZOLE
     Indication: Product used for unknown indication
     Dosage: 40 MG (MORE THAN 20 YEARS AGO)
     Route: 065
  5. VENTOLIN [Concomitant]
     Active Substance: ALBUTEROL SULFATE
     Indication: Product used for unknown indication
     Dosage: UNK UNK, QD (MANY YEARS AGO) (3 DAILY NEBULIZATIONS WITH 5 TO 8 DROPS OF VENTOLIN AS NEEDED)
     Route: 065
  6. INFLUENZA VIRUS VACCINE [Concomitant]
     Active Substance: INFLUENZA VIRUS VACCINE
     Indication: Product used for unknown indication
     Dosage: UNK
     Route: 065
     Dates: start: 20210506

REACTIONS (16)
  - Weight decreased [Unknown]
  - Gait inability [Unknown]
  - COVID-19 [Recovered/Resolved with Sequelae]
  - Infarction [Unknown]
  - Pneumonia [Unknown]
  - Fatigue [Not Recovered/Not Resolved]
  - Ocular discomfort [Unknown]
  - Body temperature increased [Unknown]
  - Cataract [Unknown]
  - Pain [Unknown]
  - Asthenia [Unknown]
  - General physical health deterioration [Unknown]
  - Headache [Recovered/Resolved]
  - Drug intolerance [Unknown]
  - Dyspnoea [Recovered/Resolved]
  - Product availability issue [Unknown]

NARRATIVE: CASE EVENT DATE: 20200701
